FAERS Safety Report 16960777 (Version 1)
Quarter: 2019Q4

REPORT INFORMATION
  Report Type: Spontaneous
  Country: US (occurrence: US)
  Receive Date: 20191025
  Receipt Date: 20191025
  Transmission Date: 20200122
  Serious: No
  Sender: FDA-Public Use
  Company Number: NVSC2019US013695

PATIENT
  Age: 78 Year
  Sex: Male

DRUGS (3)
  1. DOXYCYCLINE. [Suspect]
     Active Substance: DOXYCYCLINE
     Indication: PEMPHIGOID
     Dosage: UNK UNK, BID
     Route: 065
  2. NICOTINAMIDE [Suspect]
     Active Substance: NIACINAMIDE
     Indication: PEMPHIGOID
     Dosage: 500 MG, BID
     Route: 065
  3. TRIAMCINOLONE [Suspect]
     Active Substance: TRIAMCINOLONE
     Indication: PEMPHIGOID
     Dosage: UNK UNK, BID
     Route: 065

REACTIONS (1)
  - Drug ineffective for unapproved indication [Unknown]
